FAERS Safety Report 13252428 (Version 1)
Quarter: 2017Q1

REPORT INFORMATION
  Report Type: Spontaneous
  Country: US (occurrence: US)
  Receive Date: 20170220
  Receipt Date: 20170220
  Transmission Date: 20170428
  Serious: No
  Sender: FDA-Public Use
  Company Number: US-PFIZER INC-2017066835

PATIENT
  Sex: Female

DRUGS (3)
  1. CALMOSEPTINE /00156514/ [Concomitant]
     Indication: DISCOMFORT
  2. PREMARIN [Suspect]
     Active Substance: ESTROGENS, CONJUGATED
     Indication: VULVOVAGINAL BURNING SENSATION
     Dosage: UNK
  3. CALMOSEPTINE /00156514/ [Concomitant]
     Indication: BURNING SENSATION

REACTIONS (1)
  - Drug effect incomplete [Unknown]
